FAERS Safety Report 4620695-7 (Version None)
Quarter: 2005Q1

REPORT INFORMATION
  Report Type: 
  Country: None (occurrence: None)
  Receive Date: 20050325
  Receipt Date: 20050314
  Transmission Date: 20050727
  Serious: Yes (Other)
  Sender: FDA-Public Use
  Company Number: 200511050BCC

PATIENT
  Age: 48 Year
  Sex: Female
  Weight: 75.7507 kg

DRUGS (3)
  1. ALEVE [Suspect]
     Indication: ARTHRITIS
     Dosage: 220 MG, BID; ORAL
     Route: 048
     Dates: end: 20041201
  2. ALEVE [Suspect]
     Indication: PAIN
     Dosage: 220 MG, BID; ORAL
     Route: 048
     Dates: end: 20041201
  3. CYCLOBENZAPRINE HCL [Concomitant]

REACTIONS (2)
  - BLOOD PRESSURE INCREASED [None]
  - CARDIAC FLUTTER [None]
